FAERS Safety Report 10468513 (Version 1)
Quarter: 2014Q3

REPORT INFORMATION
  Report Type: Spontaneous
  Country: BR (occurrence: BR)
  Receive Date: 20140922
  Receipt Date: 20140922
  Transmission Date: 20150326
  Serious: Yes (Other)
  Sender: FDA-Public Use
  Company Number: PHHY2014BR123182

PATIENT
  Sex: Female
  Weight: 75 kg

DRUGS (1)
  1. DIOVAN HCT [Suspect]
     Active Substance: HYDROCHLOROTHIAZIDE\VALSARTAN
     Indication: HYPERTENSION
     Dosage: 1 DF(80/12.5MG), DAILY
     Route: 048
     Dates: start: 2007, end: 2012

REACTIONS (2)
  - Dementia Alzheimer^s type [Recovering/Resolving]
  - Senile dementia [Recovering/Resolving]
